FAERS Safety Report 18940216 (Version 1)
Quarter: 2021Q1

REPORT INFORMATION
  Report Type: Spontaneous
  Country: US (occurrence: US)
  Receive Date: 20210224
  Receipt Date: 20210224
  Transmission Date: 20210420
  Serious: Yes (Death)
  Sender: FDA-Public Use
  Company Number: None

PATIENT
  Sex: Male

DRUGS (18)
  1. CINACALCET HCL 30MG TAB [Suspect]
     Active Substance: CINACALCET HYDROCHLORIDE
     Indication: HYPERPARATHYROIDISM
     Dosage: ?          OTHER DOSE:1 TAB;?
     Route: 048
     Dates: end: 202102
  2. DOXYCYCL HYC [Concomitant]
  3. FUROSEMIDE. [Concomitant]
     Active Substance: FUROSEMIDE
  4. GABAPENTIN. [Concomitant]
     Active Substance: GABAPENTIN
  5. DUREZOL [Suspect]
     Active Substance: DIFLUPREDNATE
  6. PROLENSA [Concomitant]
     Active Substance: BROMFENAC SODIUM
  7. PROMETHAZINE [Concomitant]
     Active Substance: PROMETHAZINE HYDROCHLORIDE
  8. CEPHALEXIN. [Suspect]
     Active Substance: CEPHALEXIN
  9. HYDROCO/APAP [Concomitant]
     Active Substance: ACETAMINOPHEN\HYDROCODONE
  10. MUPIROCIN. [Concomitant]
     Active Substance: MUPIROCIN
  11. DOXAZOSIN [Suspect]
     Active Substance: DOXAZOSIN MESYLATE
  12. HYDRALAZINE [Concomitant]
     Active Substance: HYDRALAZINE HYDROCHLORIDE
  13. TRIPLE ANTIB OIN [Concomitant]
  14. BESIVANCE [Suspect]
     Active Substance: BESIFLOXACIN
  15. MINOXIDIL. [Concomitant]
     Active Substance: MINOXIDIL
  16. MELOXICAM. [Concomitant]
     Active Substance: MELOXICAM
  17. METOPROL TAR [Concomitant]
  18. CLONIDINE. [Suspect]
     Active Substance: CLONIDINE

REACTIONS (1)
  - Death [None]
